FAERS Safety Report 24579226 (Version 5)
Quarter: 2025Q1

REPORT INFORMATION
  Report Type: Report from Study
  Country: CA (occurrence: CA)
  Receive Date: 20241105
  Receipt Date: 20250320
  Transmission Date: 20250408
  Serious: Yes (Hospitalization, Other)
  Sender: TAKEDA
  Company Number: CA-TAKEDA-2024TUS098373

PATIENT
  Age: 45 Year
  Sex: Male

DRUGS (2)
  1. VEDOLIZUMAB [Suspect]
     Active Substance: VEDOLIZUMAB
     Indication: Colitis ulcerative
  2. VEDOLIZUMAB [Suspect]
     Active Substance: VEDOLIZUMAB
     Dosage: 300 MILLIGRAM, Q4WEEKS
     Dates: start: 20250313

REACTIONS (11)
  - Diverticulitis [Recovered/Resolved]
  - Crohn^s disease [Unknown]
  - Acne cystic [Unknown]
  - Drug ineffective [Unknown]
  - Fistula [Recovering/Resolving]
  - Mouth ulceration [Unknown]
  - Anal fistula [Unknown]
  - Abscess [Unknown]
  - Off label use [Unknown]
  - Haemorrhoids [Unknown]
  - Arthralgia [Unknown]

NARRATIVE: CASE EVENT DATE: 20250313
